FAERS Safety Report 4951098-3 (Version None)
Quarter: 2006Q1

REPORT INFORMATION
  Report Type: 
  Country: None (occurrence: None)
  Receive Date: 20060322
  Receipt Date: 20060301
  Transmission Date: 20060701
  Serious: Yes (Hospitalization, Disabling)
  Sender: FDA-Public Use
  Company Number: US-MERCK-0603USA00496

PATIENT
  Age: 49 Year
  Sex: Male
  Weight: 82 kg

DRUGS (5)
  1. VIOXX [Suspect]
     Indication: ARTHRALGIA
     Route: 048
     Dates: start: 19990101, end: 20040101
  2. VIOXX [Suspect]
     Route: 048
     Dates: start: 19990101, end: 20040101
  3. IBUPROFEN [Concomitant]
     Route: 065
  4. ASPIRIN [Concomitant]
     Route: 065
  5. [THERAPY UNSPECIFIED] [Concomitant]
     Route: 065

REACTIONS (7)
  - BACK INJURY [None]
  - CARDIAC DISORDER [None]
  - CARDIOVASCULAR DISORDER [None]
  - CEREBROVASCULAR ACCIDENT [None]
  - DIZZINESS [None]
  - HYPERTENSION [None]
  - NECK INJURY [None]
